FAERS Safety Report 8925368 (Version 2)
Quarter: 2013Q4

REPORT INFORMATION
  Report Type: Spontaneous
  Country: CN (occurrence: CN)
  Receive Date: 20121126
  Receipt Date: 20131126
  Transmission Date: 20140711
  Serious: Yes (Other)
  Sender: FDA-Public Use
  Company Number: CN-009507513-1211TWN009044

PATIENT
  Age: 52 Year
  Sex: Male

DRUGS (2)
  1. SINGULAIR (LOCAL DIST) [Suspect]
     Indication: PRODUCT USED FOR UNKNOWN INDICATION
     Dosage: 4 MG, QD
     Route: 048
     Dates: start: 201208, end: 20121114
  2. SERETIDE [Concomitant]
     Indication: PRODUCT USED FOR UNKNOWN INDICATION
     Dosage: UNK
     Route: 065
     Dates: start: 201208

REACTIONS (3)
  - Loss of consciousness [Unknown]
  - Unresponsive to stimuli [Unknown]
  - Gait disturbance [Unknown]
